FAERS Safety Report 9596273 (Version 2)
Quarter: 2014Q2

REPORT INFORMATION
  Report Type: Report from Study
  Country: JP (occurrence: JP)
  Receive Date: 20131004
  Receipt Date: 20140523
  Transmission Date: 20141212
  Serious: Yes (Death)
  Sender: FDA-Public Use
  Company Number: JP-OTSUKA-JP-2013-14202

PATIENT
  Age: 68 Year
  Sex: Male

DRUGS (12)
  1. SAMSCA [Suspect]
     Indication: OEDEMA DUE TO CARDIAC DISEASE
     Dosage: 15 MG MILLIGRAM(S), QAM
     Route: 048
     Dates: start: 20120508, end: 20120512
  2. LASIX [Concomitant]
     Indication: CARDIAC FAILURE
     Dosage: 40 MG MILLIGRAM(S), DAILY DOSE
     Route: 048
     Dates: end: 20120512
  3. BAYASPIRIN [Concomitant]
     Indication: CARDIAC FAILURE
     Dosage: 100 MG MILLIGRAM(S), DAILY DOSE
     Route: 048
     Dates: end: 20120512
  4. LANSOPRAZOLE [Concomitant]
     Indication: PROPHYLAXIS
     Dosage: 15 MG MILLIGRAM(S), DAILY DOSE
     Route: 048
     Dates: end: 20120512
  5. ARTIST [Concomitant]
     Indication: CARDIAC FAILURE
     Dosage: 2.5 MG MILLIGRAM(S), DAILY DOSE
     Route: 048
     Dates: end: 20120512
  6. MAGMITT [Concomitant]
     Indication: PROPHYLAXIS
     Dosage: 1980 MG MILLIGRAM(S), DAILY DOSE
     Route: 048
     Dates: end: 20120512
  7. REBAMIPIDE [Concomitant]
     Indication: PROPHYLAXIS
     Dosage: 300 MG MILLIGRAM(S), DAILY DOSE
     Route: 048
     Dates: end: 20120512
  8. CEFCAPENE PIVOXIL HYDROCHLORIDE [Concomitant]
     Indication: PROPHYLAXIS
     Dosage: 100 MG MILLIGRAM(S), DAILY DOSE
     Route: 048
     Dates: end: 20120512
  9. TRAMCET [Concomitant]
     Indication: PROPHYLAXIS
     Dosage: 150 MG MILLIGRAM(S), DAILY DOSE
     Route: 048
     Dates: end: 20120512
  10. LASIX [Concomitant]
     Indication: CARDIAC FAILURE
     Dosage: 100 MG MILLIGRAM(S), DAILY DOSE
     Route: 042
     Dates: end: 20120512
  11. SERENACE [Concomitant]
     Dosage: 5 MG MILLIGRAM(S), DAILY DOSE
     Route: 042
     Dates: end: 20120512
  12. MORPHINE HYDROCHLORIDE [Concomitant]
     Dosage: 50 MG MILLIGRAM(S), DAILY DOSE
     Route: 042
     Dates: start: 20120511, end: 20120512

REACTIONS (1)
  - Death [Fatal]
